FAERS Safety Report 18223552 (Version 1)
Quarter: 2020Q3

REPORT INFORMATION
  Report Type: Spontaneous
  Country: US (occurrence: US)
  Receive Date: 20200901
  Receipt Date: 20200901
  Transmission Date: 20201103
  Serious: Yes (Death)
  Sender: FDA-Public Use
  Company Number: None

PATIENT
  Sex: Male

DRUGS (7)
  1. XANAX [Concomitant]
     Active Substance: ALPRAZOLAM
  2. LISINOPRIL. [Concomitant]
     Active Substance: LISINOPRIL
  3. XIFAXAN [Concomitant]
     Active Substance: RIFAXIMIN
  4. AFINITOR [Suspect]
     Active Substance: EVEROLIMUS
     Indication: RENAL CELL CARCINOMA
     Dosage: ?          QUANTITY:1 TABLET;?
     Route: 048
     Dates: start: 20200108
  5. OXYCODONE [Concomitant]
     Active Substance: OXYCODONE
  6. LACTULOSE. [Concomitant]
     Active Substance: LACTULOSE
  7. OXYCONTIN [Concomitant]
     Active Substance: OXYCODONE HYDROCHLORIDE

REACTIONS (2)
  - Pelvic fracture [None]
  - Therapy interrupted [None]
